FAERS Safety Report 6270849-1 (Version None)
Quarter: 2009Q3

REPORT INFORMATION
  Report Type: 
  Country: None (occurrence: None)
  Receive Date: 20090716
  Receipt Date: 20090715
  Transmission Date: 20100115
  Serious: Yes (Hospitalization)
  Sender: FDA-Public Use
  Company Number: US-B.I. PHARMACEUTICALS,INC./RIDGEFIELD-2009-BP-05479BP

PATIENT
  Sex: Female

DRUGS (11)
  1. SPIRIVA [Suspect]
     Indication: CHRONIC OBSTRUCTIVE PULMONARY DISEASE
     Dosage: 36 MCG
     Route: 055
     Dates: start: 20070101
  2. ASPIRIN [Concomitant]
  3. MAXADINE [Concomitant]
     Indication: HYPERTENSION
  4. ADVAIR HFA [Concomitant]
     Indication: CHRONIC OBSTRUCTIVE PULMONARY DISEASE
  5. OMEPRAZOLE [Concomitant]
  6. MAXZIDE [Concomitant]
  7. ATIVAN [Concomitant]
     Dosage: 3 MG
  8. POTASSIUM CHLORIDE [Concomitant]
  9. INDERAL [Concomitant]
  10. PRAVASTATIN SODIUM [Concomitant]
  11. PREDNISONE TAB [Concomitant]

REACTIONS (4)
  - GASTRIC DISORDER [None]
  - LIGAMENT RUPTURE [None]
  - NASAL CONGESTION [None]
  - PNEUMONIA [None]
